FAERS Safety Report 20939595 (Version 1)
Quarter: 2022Q2

REPORT INFORMATION
  Report Type: Report from Study
  Country: IT (occurrence: IT)
  Receive Date: 20220609
  Receipt Date: 20220609
  Transmission Date: 20220720
  Serious: Yes (Other)
  Sender: FDA-Public Use
  Company Number: None

PATIENT
  Age: 86 Year
  Sex: Male

DRUGS (7)
  1. RISPERIDONE [Suspect]
     Active Substance: RISPERIDONE
     Route: 065
     Dates: start: 20220101, end: 20220427
  2. TAMSULOSIN [Suspect]
     Active Substance: TAMSULOSIN
     Route: 048
     Dates: start: 20220101, end: 20220427
  3. TRAZODONE HYDROCHLORIDE [Suspect]
     Active Substance: TRAZODONE HYDROCHLORIDE
     Dosage: UNIT DOSE : 100 MG, FREQUENCY TIME : 1 DAYS
     Route: 048
  4. VALSARTAN [Suspect]
     Active Substance: VALSARTAN
     Route: 048
     Dates: start: 20220101, end: 20220427
  5. MEMANTINE HYDROCHLORIDE [Concomitant]
     Active Substance: MEMANTINE HYDROCHLORIDE
  6. ALLOPURINOL [Concomitant]
     Active Substance: ALLOPURINOL
  7. FENOFIBRATE [Concomitant]
     Active Substance: FENOFIBRATE

REACTIONS (2)
  - Orthostatic hypotension [Recovering/Resolving]
  - Syncope [Recovering/Resolving]

NARRATIVE: CASE EVENT DATE: 20220427
